FAERS Safety Report 20451646 (Version 2)
Quarter: 2022Q1

REPORT INFORMATION
  Report Type: Spontaneous
  Country: CN (occurrence: CN)
  Receive Date: 20220209
  Receipt Date: 20220211
  Transmission Date: 20220423
  Serious: Yes (Other)
  Sender: FDA-Public Use
  Company Number: CN-PFIZER INC-202200168380

PATIENT
  Age: 54 Year
  Sex: Female
  Weight: 48 kg

DRUGS (2)
  1. DOXORUBICIN HYDROCHLORIDE [Suspect]
     Active Substance: DOXORUBICIN HYDROCHLORIDE
     Indication: Breast cancer
     Dosage: 50 MG, CYCLIC (ONCE DAILY, D1, CYCLE 1)
     Route: 041
     Dates: start: 20211210, end: 20211210
  2. CYCLOPHOSPHAMIDE [Suspect]
     Active Substance: CYCLOPHOSPHAMIDE
     Indication: Breast cancer
     Dosage: 1 G, CYCLIC (ONCE DAILY, D1, CYCLE 1)
     Route: 041
     Dates: start: 20211210, end: 20211210

REACTIONS (3)
  - Eructation [Recovering/Resolving]
  - Gastrooesophageal reflux disease [Recovering/Resolving]
  - Decreased appetite [Unknown]

NARRATIVE: CASE EVENT DATE: 20211211
